FAERS Safety Report 8991386 (Version 2)
Quarter: 2013Q1

REPORT INFORMATION
  Report Type: Spontaneous
  Country: US (occurrence: US)
  Receive Date: 20121229
  Receipt Date: 20130305
  Transmission Date: 20140127
  Serious: Yes (Other)
  Sender: FDA-Public Use
  Company Number: US-B.I. PHARMACEUTICALS,INC./RIDGEFIELD-2012-BI-03509BP

PATIENT
  Age: 79 Year
  Sex: Male
  Weight: 88 kg

DRUGS (10)
  1. PRADAXA [Suspect]
     Indication: CEREBROVASCULAR ACCIDENT PROPHYLAXIS
     Dosage: 300 MG
     Dates: start: 20120925, end: 20121212
  2. PRADAXA [Suspect]
     Indication: ATRIAL FIBRILLATION
  3. HYTRIN [Concomitant]
     Indication: BENIGN PROSTATIC HYPERPLASIA
     Dosage: 5 MG
  4. LIPITOR [Concomitant]
     Indication: MYOCARDIAL ISCHAEMIA
     Dosage: 40 MG
  5. RANEXA [Concomitant]
     Indication: MYOCARDIAL ISCHAEMIA
     Dosage: 1000 MG
  6. LOSARTAN [Concomitant]
     Indication: HYPERTENSION
     Dosage: 100 MG
  7. PRILOSEC [Concomitant]
     Indication: GASTROOESOPHAGEAL REFLUX DISEASE
     Dosage: 20 MG
  8. SYMBICORT [Concomitant]
  9. TOPROL XL [Concomitant]
  10. FISH OIL [Concomitant]

REACTIONS (2)
  - Haematuria [Recovered/Resolved]
  - Nephrolithiasis [Recovered/Resolved]
